FAERS Safety Report 25342043 (Version 2)
Quarter: 2025Q2

REPORT INFORMATION
  Report Type: Spontaneous
  Country: BE (occurrence: BE)
  Receive Date: 20250521
  Receipt Date: 20250626
  Transmission Date: 20250716
  Serious: Yes (Hospitalization, Other)
  Sender: SANOFI AVENTIS
  Company Number: BE-SA-2025SA145258

PATIENT
  Age: 73 Year
  Sex: Male

DRUGS (6)
  1. DUPIXENT [Suspect]
     Active Substance: DUPILUMAB
     Indication: Chronic rhinosinusitis with nasal polyps
     Dosage: 300 MG, QOW
     Dates: start: 20250205, end: 20250206
  2. TRELEGY ELLIPTA [Concomitant]
     Active Substance: FLUTICASONE FUROATE\UMECLIDINIUM BROMIDE\VILANTEROL TRIFENATATE
  3. Dorzolamide/timolol eg [Concomitant]
  4. NASONEX [Concomitant]
     Active Substance: MOMETASONE FUROATE
  5. AMOXICILLIN\CLAVULANIC ACID [Concomitant]
     Active Substance: AMOXICILLIN\CLAVULANIC ACID
  6. PERINDOPRIL [Concomitant]
     Active Substance: PERINDOPRIL

REACTIONS (28)
  - Arrhythmia [Unknown]
  - C-reactive protein increased [Unknown]
  - Rib fracture [Unknown]
  - Fall [Unknown]
  - Cardio-respiratory arrest [Recovered/Resolved]
  - Cardiogenic shock [Recovering/Resolving]
  - Ventricular fibrillation [Recovering/Resolving]
  - Pneumonia aspiration [Recovering/Resolving]
  - Renal impairment [Recovering/Resolving]
  - Respiratory failure [Recovering/Resolving]
  - Hypoxia [Recovering/Resolving]
  - Hypercapnia [Recovering/Resolving]
  - Oedema [Recovering/Resolving]
  - Pericarditis infective [Recovering/Resolving]
  - Painful respiration [Unknown]
  - Pleural effusion [Recovering/Resolving]
  - Leukopenia [Unknown]
  - Gastrointestinal hypomotility [Unknown]
  - Hypernatraemia [Unknown]
  - Hypermagnesaemia [Unknown]
  - Hyperphosphataemia [Unknown]
  - Thrombocytopenia [Unknown]
  - Renal papillary necrosis [Unknown]
  - Renal cortical necrosis [Unknown]
  - Skin abrasion [Unknown]
  - Aortic valve sclerosis [Unknown]
  - Blood creatinine increased [Recovering/Resolving]
  - Pyrexia [Unknown]

NARRATIVE: CASE EVENT DATE: 20250201
